FAERS Safety Report 17080906 (Version 1)
Quarter: 2019Q4

REPORT INFORMATION
  Report Type: Spontaneous
  Country: US (occurrence: US)
  Receive Date: 20191127
  Receipt Date: 20191127
  Transmission Date: 20200122
  Serious: Yes (Life-Threatening, Hospitalization, Other)
  Sender: FDA-Public Use
  Company Number: US-SCIEGEN PHARMACEUTICALS INC-2019SCILIT00362

PATIENT
  Age: 80 Year
  Sex: Male

DRUGS (5)
  1. HYDRALAZINE HYDROCHLORIDE. [Suspect]
     Active Substance: HYDRALAZINE HYDROCHLORIDE
  2. NIFEDIPINE. [Concomitant]
     Active Substance: NIFEDIPINE
  3. WARFARIN [COUMADIN] [Concomitant]
  4. METOPROLOL. [Concomitant]
     Active Substance: METOPROLOL
  5. RITUXIMAB. [Interacting]
     Active Substance: RITUXIMAB

REACTIONS (5)
  - Fatigue [Unknown]
  - Pulmonary renal syndrome [Recovering/Resolving]
  - Neurological symptom [Unknown]
  - Anti-neutrophil cytoplasmic antibody positive vasculitis [Recovered/Resolved]
  - Condition aggravated [Recovering/Resolving]
